FAERS Safety Report 5269225-X (Version None)
Quarter: 2007Q1

REPORT INFORMATION
  Report Type: 
  Country: None (occurrence: None)
  Receive Date: 20070319
  Receipt Date: 20070305
  Transmission Date: 20070707
  Serious: Yes (Hospitalization)
  Sender: FDA-Public Use
  Company Number: DE-PFIZER INC-2006113907

PATIENT
  Sex: Male
  Weight: 88 kg

DRUGS (6)
  1. SU-011,248 [Suspect]
     Indication: METASTATIC RENAL CELL CARCINOMA
     Route: 048
     Dates: start: 20060529, end: 20060626
  2. SU-011,248 [Suspect]
     Route: 048
     Dates: start: 20060710, end: 20060807
  3. IMIDAZOLE DERIVATIVES [Concomitant]
     Route: 042
  4. MORPHINE SULFATE [Concomitant]
     Route: 048
  5. FUROSEMIDE [Concomitant]
     Route: 048
  6. BIPHOSPHONATE [Concomitant]
     Route: 042

REACTIONS (1)
  - PNEUMONIA [None]
